FAERS Safety Report 5082507-X (Version None)
Quarter: 2006Q3

REPORT INFORMATION
  Report Type: 
  Country: None (occurrence: None)
  Receive Date: 20060817
  Receipt Date: 20060808
  Transmission Date: 20061208
  Serious: Yes (Other)
  Sender: FDA-Public Use
  Company Number: US-MERCK-0608USA01658

PATIENT
  Age: 57 Year
  Sex: Male

DRUGS (3)
  1. COZAAR [Suspect]
     Indication: HYPERTENSION
     Route: 048
     Dates: start: 20040101
  2. HYDRODIURIL [Concomitant]
     Route: 065
  3. GEMFIBROZIL [Concomitant]
     Route: 065

REACTIONS (3)
  - DYSPNOEA [None]
  - GENERAL SYMPTOM [None]
  - LARYNGITIS [None]
